FAERS Safety Report 18455087 (Version 1)
Quarter: 2020Q4

REPORT INFORMATION
  Report Type: Spontaneous
  Country: IN (occurrence: IN)
  Receive Date: 20201102
  Receipt Date: 20201102
  Transmission Date: 20210114
  Serious: Yes (Other)
  Sender: FDA-Public Use
  Company Number: IN-ANIPHARMA-2020-IN-000165

PATIENT
  Age: 72 Year
  Sex: Female

DRUGS (2)
  1. CYCLOPHOSPHAMIDE CAPSULES (NON-SPECIFIC) [Suspect]
     Active Substance: CYCLOPHOSPHAMIDE
     Indication: BREAST CANCER
  2. PACLITAXEL. [Suspect]
     Active Substance: PACLITAXEL
     Indication: BREAST CANCER

REACTIONS (3)
  - Blindness [Unknown]
  - Retinopathy [Unknown]
  - Optic neuropathy [Unknown]
